FAERS Safety Report 6547892-8 (Version None)
Quarter: 2010Q1

REPORT INFORMATION
  Report Type: 
  Country: None (occurrence: None)
  Receive Date: 20100124
  Receipt Date: 20091117
  Transmission Date: 20100710
  Serious: No
  Sender: FDA-Public Use
  Company Number: US-ALEXION-A200900985

PATIENT
  Sex: Female

DRUGS (7)
  1. SOLIRIS [Suspect]
     Indication: PAROXYSMAL NOCTURNAL HAEMOGLOBINURIA
     Dosage: 600 MG, QW
     Route: 042
     Dates: start: 20090423, end: 20090501
  2. SOLIRIS [Suspect]
     Dosage: 900 MG, Q2W
     Route: 042
     Dates: start: 20090520
  3. COLACE [Concomitant]
     Dosage: 100 MG, BID
     Route: 048
  4. SENNA-MINT WAF [Concomitant]
     Dosage: 8.6 MG, QD
     Route: 048
     Dates: end: 20091130
  5. FOLIC ACID [Concomitant]
     Dosage: 1 MG, BID
     Route: 048
  6. ARIXTRA [Concomitant]
     Dosage: 7.5 MG, QD
     Route: 058
  7. GLYCOLAX [Concomitant]
     Dosage: 1 CUP, PRN
     Route: 048

REACTIONS (1)
  - INFLUENZA [None]
